FAERS Safety Report 9699295 (Version 2)
Quarter: 2013Q4

REPORT INFORMATION
  Report Type: Spontaneous
  Country: US (occurrence: US)
  Receive Date: 20131120
  Receipt Date: 20131120
  Transmission Date: 20140711
  Serious: Yes (Hospitalization)
  Sender: FDA-Public Use
  Company Number: US-GILEAD-2008-0015163

PATIENT
  Age: 80 Year
  Sex: Male

DRUGS (16)
  1. LETAIRIS [Suspect]
     Indication: PULMONARY ARTERIAL HYPERTENSION
     Route: 048
     Dates: start: 20080107
  2. DEMADEX [Concomitant]
  3. ENALAPRIL [Concomitant]
  4. METOLAZONE [Concomitant]
  5. ATENOLOL [Concomitant]
  6. WARFARIN [Concomitant]
  7. ASA [Concomitant]
  8. PLAVIX [Concomitant]
  9. DIGOXIN [Concomitant]
  10. ISOSORBIDE [Concomitant]
  11. SIMVASTATIN [Concomitant]
  12. SYNTHROID [Concomitant]
  13. PROSCAR [Concomitant]
  14. DETROL [Concomitant]
  15. GLIPIZIDE [Concomitant]
  16. FLUOXETINE [Concomitant]

REACTIONS (1)
  - Red blood cell count decreased [Unknown]
